FAERS Safety Report 7809542-X (Version None)
Quarter: 2011Q4

REPORT INFORMATION
  Report Type: 
  Country: None (occurrence: None)
  Receive Date: 20111012
  Receipt Date: 20111009
  Transmission Date: 20120403
  Serious: Yes (Death, Other)
  Sender: FDA-Public Use
  Company Number: PHHY2011VN89255

PATIENT
  Age: 90 Year
  Sex: Female

DRUGS (7)
  1. ZOLEDRONOC ACID [Suspect]
     Indication: OSTEOPOROSIS
     Dosage: 5 MG / 100 ML
     Route: 042
     Dates: start: 20111007, end: 20111007
  2. DIACEREIN [Concomitant]
     Indication: OSTEOARTHRITIS
     Dosage: 50 MG, DAILY
     Route: 048
     Dates: start: 20111004, end: 20111008
  3. GLUCOSAMINE SULFATE [Concomitant]
     Indication: OSTEOARTHRITIS
     Dosage: 250 MG, DAILY
     Route: 048
     Dates: start: 20111004, end: 20111008
  4. ACETAMINOPHEN [Concomitant]
     Indication: PAIN
     Dosage: 500 MG, TID
     Route: 048
     Dates: start: 20111004, end: 20111008
  5. AMLODIPINE BESYLATE [Concomitant]
     Indication: HYPERTENSION
     Dosage: 5 MG, DAILY
     Route: 048
     Dates: start: 20111004, end: 20111008
  6. MOBIC [Concomitant]
     Indication: PAIN
     Dosage: 7.5 MG, DAILY
     Route: 048
     Dates: start: 20111004, end: 20111008
  7. CALCIUM SANDOZ [Concomitant]
     Indication: OSTEOPOROSIS
     Dosage: 500 MG, DAILY
     Route: 048
     Dates: start: 20111004, end: 20111008

REACTIONS (5)
  - ACUTE MYOCARDIAL INFARCTION [None]
  - PYREXIA [None]
  - LEFT VENTRICULAR HYPERTROPHY [None]
  - HYPERTENSION [None]
  - FATIGUE [None]
